FAERS Safety Report 12392621 (Version 1)
Quarter: 2016Q2

REPORT INFORMATION
  Report Type: Report from Study
  Country: US (occurrence: US)
  Receive Date: 20160523
  Receipt Date: 20160523
  Transmission Date: 20160815
  Serious: No
  Sender: FDA-Public Use
  Company Number: US-AMGEN-USASL2016059748

PATIENT
  Age: 74 Year
  Sex: Female

DRUGS (1)
  1. ENBREL [Suspect]
     Active Substance: ETANERCEPT
     Indication: RHEUMATOID ARTHRITIS
     Dosage: UNK UNK, QWK
     Route: 065
     Dates: start: 2016

REACTIONS (6)
  - Incorrect dosage administered [Unknown]
  - Injection site swelling [Unknown]
  - Injection site erythema [Unknown]
  - Device leakage [Unknown]
  - Injection site urticaria [Unknown]
  - Injection site warmth [Unknown]

NARRATIVE: CASE EVENT DATE: 20160509
